FAERS Safety Report 4707418-8 (Version None)
Quarter: 2005Q3

REPORT INFORMATION
  Report Type: 
  Country: None (occurrence: None)
  Receive Date: 20050706
  Receipt Date: 20050624
  Transmission Date: 20060218
  Serious: Yes (Hospitalization)
  Sender: FDA-Public Use
  Company Number: 2005AP03550

PATIENT
  Age: 86 Year
  Sex: Female

DRUGS (2)
  1. ARIMIDEX [Suspect]
     Indication: BREAST CANCER
     Route: 048
     Dates: start: 20050501
  2. NOLVADEX [Concomitant]
     Indication: BREAST CANCER
     Dates: end: 20050501

REACTIONS (1)
  - BRONCHIOLITIS [None]
